FAERS Safety Report 10785453 (Version 1)
Quarter: 2015Q1

REPORT INFORMATION
  Report Type: Spontaneous
  Country: US (occurrence: None)
  Receive Date: 20150210
  Receipt Date: 20150210
  Transmission Date: 20150721
  Serious: Yes (Death)
  Sender: FDA-Public Use
  Company Number: None

PATIENT
  Sex: Female

DRUGS (2)
  1. SHOWER TO SHOWER TALCUM PRODUCT [Suspect]
     Active Substance: TALC
     Indication: THERAPEUTIC SKIN CARE TOPICAL
     Route: 061
  2. JOHNSONS BABY POWDER [Suspect]
     Active Substance: TALC
     Indication: THERAPEUTIC SKIN CARE TOPICAL
     Route: 061

REACTIONS (1)
  - Ovarian cancer [None]
